FAERS Safety Report 6936369-3 (Version None)
Quarter: 2010Q3

REPORT INFORMATION
  Report Type: 
  Country: None (occurrence: None)
  Receive Date: 20100818
  Receipt Date: 20100818
  Transmission Date: 20110219
  Serious: Yes (Death)
  Sender: FDA-Public Use
  Company Number: OSCN-PR-1008S-0213

PATIENT
  Sex: Male

DRUGS (4)
  1. OMNISCAN (GADODIAMIDE) [Suspect]
     Indication: PRODUCT USED FOR UNKNOWN INDICATION
     Dosage: NR, SINGLE DOSE
     Dates: start: 20021224, end: 20021224
  2. OMNISCAN (GADODIAMIDE) [Suspect]
     Indication: PRODUCT USED FOR UNKNOWN INDICATION
     Dosage: NR, SINGLE DOSE
     Dates: start: 20050829, end: 20050829
  3. MAGNEVIST [Suspect]
     Indication: PRODUCT USED FOR UNKNOWN INDICATION
     Dosage: NR, SINGLE DOSE
     Dates: start: 20030326, end: 20030326
  4. OPTIMARK [Suspect]
     Indication: PRODUCT USED FOR UNKNOWN INDICATION
     Dosage: NR, SINGLE DOSE
     Dates: start: 20051019, end: 20051019

REACTIONS (1)
  - NEPHROGENIC SYSTEMIC FIBROSIS [None]
